FAERS Safety Report 24017725 (Version 1)
Quarter: 2024Q2

REPORT INFORMATION
  Report Type: Spontaneous
  Country: PL (occurrence: PL)
  Receive Date: 20240627
  Receipt Date: 20240627
  Transmission Date: 20240716
  Serious: Yes (Other)
  Sender: FDA-Public Use
  Company Number: PL-JNJFOC-20240657343

PATIENT
  Age: 71 Year

DRUGS (10)
  1. DARZALEX [Suspect]
     Active Substance: DARATUMUMAB
     Indication: Plasma cell myeloma
     Dosage: QW CYCLES 1-2, Q2W CYCLES 3-6 AND THEN Q4W UNTIL PD .
     Route: 042
  2. LENALIDOMIDE [Suspect]
     Active Substance: LENALIDOMIDE
     Indication: Plasma cell myeloma
     Dosage: ON DAYS 1-21 UNTIL PD
     Route: 048
  3. DEXAMETHASONE [Suspect]
     Active Substance: DEXAMETHASONE
     Indication: Plasma cell myeloma
     Dosage: DAYS 1, 8, 15, 22 UNTIL PD
     Route: 048
  4. LEVOFLOXACIN [Concomitant]
     Active Substance: LEVOFLOXACIN
     Dosage: 1X1 FOR 3 MONTHS
  5. ACYCLOVIR [Concomitant]
     Active Substance: ACYCLOVIR
     Route: 048
  6. APIXABAN [Concomitant]
     Active Substance: APIXABAN
     Route: 048
  7. ALLOPURINOL [Concomitant]
     Active Substance: ALLOPURINOL
  8. ZOLEDRONIC ACID [Concomitant]
     Active Substance: ZOLEDRONIC ACID
     Dosage: 1X/6 WEEKS
     Route: 042
  9. CALCIUM CARBONATE [Concomitant]
     Active Substance: CALCIUM CARBONATE
     Dosage: 1000 1X1
     Route: 048
  10. ERGOCALCIFEROL [Concomitant]
     Active Substance: ERGOCALCIFEROL

REACTIONS (2)
  - Pneumonia [Unknown]
  - Myeloproliferative neoplasm [Unknown]
